FAERS Safety Report 21606923 (Version 2)
Quarter: 2022Q4

REPORT INFORMATION
  Report Type: Report from Study
  Country: BR (occurrence: BR)
  Receive Date: 20221117
  Receipt Date: 20221214
  Transmission Date: 20230112
  Serious: Yes (Other)
  Sender: FDA-Public Use
  Company Number: BR-JNJFOC-20221125344

PATIENT
  Age: 40 Year
  Sex: Male
  Weight: 58 kg

DRUGS (3)
  1. SIMPONI [Suspect]
     Active Substance: GOLIMUMAB
     Indication: Axial spondyloarthritis
     Route: 058
     Dates: start: 202203
  2. SIMPONI [Suspect]
     Active Substance: GOLIMUMAB
     Route: 058
     Dates: start: 202206, end: 20221028
  3. METHOTREXATE [Concomitant]
     Active Substance: METHOTREXATE
     Indication: Product used for unknown indication

REACTIONS (8)
  - SAPHO syndrome [Unknown]
  - Diabetes mellitus [Unknown]
  - Ankylosing spondylitis [Not Recovered/Not Resolved]
  - Hypertension [Unknown]
  - Candida infection [Unknown]
  - Proteinuria [Unknown]
  - Blood urine present [Unknown]
  - Drug ineffective [Unknown]
